FAERS Safety Report 7142172-4 (Version None)
Quarter: 2010Q4

REPORT INFORMATION
  Report Type: 
  Country: None (occurrence: None)
  Receive Date: 20101203
  Receipt Date: 20101203
  Transmission Date: 20110411
  Serious: Yes (Other)
  Sender: FDA-Public Use
  Company Number: None

PATIENT
  Age: 52 Year
  Sex: Female
  Weight: 59.8748 kg

DRUGS (1)
  1. BIAXIN XL [Suspect]
     Indication: LYME DISEASE
     Dosage: 2 TABS ONCE/DAY PO
     Route: 048
     Dates: start: 20101123, end: 20101129

REACTIONS (9)
  - ABDOMINAL DISTENSION [None]
  - DEHYDRATION [None]
  - DYSGEUSIA [None]
  - HEART RATE INCREASED [None]
  - INSOMNIA [None]
  - MUSCLE SPASMS [None]
  - NIGHTMARE [None]
  - PAIN [None]
  - TINNITUS [None]
